FAERS Safety Report 12037508 (Version 1)
Quarter: 2016Q1

REPORT INFORMATION
  Report Type: Spontaneous
  Country: US (occurrence: US)
  Receive Date: 20160208
  Receipt Date: 20160208
  Transmission Date: 20160526
  Serious: Yes (Other)
  Sender: FDA-Public Use
  Company Number: US-TEVA-632217USA

PATIENT
  Age: 22 Year
  Sex: Male

DRUGS (8)
  1. NORDITROPIN [Concomitant]
     Active Substance: SOMATROPIN
     Dosage: 15MG PER 15 L SOLUTION INJECTION 0.4 QHS
     Route: 058
  2. SYNTHROID [Concomitant]
     Active Substance: LEVOTHYROXINE SODIUM
     Dosage: .112 MILLIGRAM DAILY;
     Route: 065
  3. METHOTREXATE [Concomitant]
     Active Substance: METHOTREXATE
     Indication: PRIMITIVE NEUROECTODERMAL TUMOUR
     Route: 065
  4. COLECALCIFEROL [Concomitant]
     Active Substance: CHOLECALCIFEROL
     Dosage: 400 IU (INTERNATIONAL UNIT) DAILY;
     Route: 058
  5. ANDROGEL [Concomitant]
     Active Substance: TESTOSTERONE
     Dosage: 1.25 GM/ACT (1%) GL APPLY FOUR PUMPS TO SKIN DAILY
     Route: 003
  6. IFOSFAMIDE. [Concomitant]
     Active Substance: IFOSFAMIDE
     Indication: PRIMITIVE NEUROECTODERMAL TUMOUR
     Route: 065
  7. CISPLATIN. [Suspect]
     Active Substance: CISPLATIN
     Indication: PRIMITIVE NEUROECTODERMAL TUMOUR
     Route: 065
  8. CYTARABINE. [Concomitant]
     Active Substance: CYTARABINE
     Indication: PRIMITIVE NEUROECTODERMAL TUMOUR
     Route: 065

REACTIONS (1)
  - Glossopharyngeal nerve disorder [Recovering/Resolving]

NARRATIVE: CASE EVENT DATE: 201407
